FAERS Safety Report 7375143-3 (Version None)
Quarter: 2011Q1

REPORT INFORMATION
  Report Type: 
  Country: None (occurrence: None)
  Receive Date: 20110325
  Receipt Date: 20110317
  Transmission Date: 20110831
  Serious: Yes (Other)
  Sender: FDA-Public Use
  Company Number: NL-AMGEN-NLDSP2011015413

PATIENT
  Age: 41 Year
  Sex: Female

DRUGS (5)
  1. PERINDOPRIL [Concomitant]
     Dosage: UNK
  2. VENTOLIN [Concomitant]
     Dosage: UNK
  3. ENBREL [Suspect]
     Indication: PSORIATIC ARTHROPATHY
     Dosage: 50 MG, WEEKLY
     Dates: start: 20101013, end: 20110201
  4. NAPROXEN [Concomitant]
     Dosage: UNK
  5. TRIAMTERENE AND HYDROCHLOROTHIAZIDE [Concomitant]
     Dosage: UNK

REACTIONS (2)
  - ASTHMA [None]
  - RESPIRATORY TRACT INFECTION [None]
